FAERS Safety Report 10012501 (Version 8)
Quarter: 2015Q1

REPORT INFORMATION
  Report Type: Report from Study
  Country: US (occurrence: US)
  Receive Date: 20140314
  Receipt Date: 20150210
  Transmission Date: 20150720
  Serious: Yes (Other)
  Sender: FDA-Public Use
  Company Number: PHEH2014US005155

PATIENT
  Sex: Female

DRUGS (2)
  1. TEGRETOL [Suspect]
     Active Substance: CARBAMAZEPINE
     Indication: SEIZURE
     Dosage: 200 MG, TWO TABLETS THREE TIMES DAY
     Route: 048
  2. CARBAMAZEPINE. [Suspect]
     Active Substance: CARBAMAZEPINE
     Indication: PRODUCT USED FOR UNKNOWN INDICATION
     Route: 065

REACTIONS (33)
  - Cerebral haemorrhage [Unknown]
  - Neck pain [Unknown]
  - Seizure [Not Recovered/Not Resolved]
  - Back pain [Unknown]
  - Contusion [Unknown]
  - Intervertebral disc protrusion [Unknown]
  - Skin lesion [Unknown]
  - Tenderness [Unknown]
  - Vomiting [Unknown]
  - Fall [Unknown]
  - Breast mass [Unknown]
  - Hyperlipidaemia [Unknown]
  - Neoplasm skin [Not Recovered/Not Resolved]
  - Joint dislocation [Unknown]
  - Arthralgia [Unknown]
  - Hypothyroidism [Unknown]
  - Dizziness [Not Recovered/Not Resolved]
  - Arteriovenous malformation [Unknown]
  - Carpal tunnel syndrome [Unknown]
  - Pain [Unknown]
  - Iron deficiency anaemia [Recovering/Resolving]
  - Headache [Unknown]
  - Fatigue [Recovering/Resolving]
  - Vitamin B12 deficiency [Unknown]
  - Drug intolerance [Unknown]
  - Diplopia [Unknown]
  - Aphasia [Unknown]
  - Arthritis [Unknown]
  - Vision blurred [Unknown]
  - Rash [Not Recovered/Not Resolved]
  - Amnesia [Not Recovered/Not Resolved]
  - Lymphadenopathy [Unknown]
  - Depression [Unknown]
